FAERS Safety Report 5127293-X (Version None)
Quarter: 2006Q4

REPORT INFORMATION
  Report Type: 
  Country: None (occurrence: None)
  Receive Date: 20061013
  Receipt Date: 20061005
  Transmission Date: 20070319
  Serious: Yes (Disabling)
  Sender: FDA-Public Use
  Company Number: CA-ABBOTT-06P-028-0346019-00

PATIENT
  Sex: Male

DRUGS (8)
  1. RITONAVIR SOFT GELATIN CAPSULES [Suspect]
     Indication: DRUG USE FOR UNKNOWN INDICATION
     Dates: start: 20050201
  2. TIPRANAVIR [Suspect]
     Indication: DRUG USE FOR UNKNOWN INDICATION
     Dates: start: 20050201
  3. RABEPRAZOLE SODIUM [Concomitant]
     Indication: DRUG USE FOR UNKNOWN INDICATION
  4. FUZEON [Concomitant]
     Indication: DRUG USE FOR UNKNOWN INDICATION
  5. TENOFOVIR [Concomitant]
     Indication: DRUG USE FOR UNKNOWN INDICATION
  6. CIALIS [Concomitant]
     Indication: DRUG USE FOR UNKNOWN INDICATION
  7. TRIZIVIR [Concomitant]
     Indication: DRUG USE FOR UNKNOWN INDICATION
  8. IMODIUM [Concomitant]
     Indication: DRUG USE FOR UNKNOWN INDICATION

REACTIONS (1)
  - ARTERIAL STENOSIS LIMB [None]
